FAERS Safety Report 18965083 (Version 4)
Quarter: 2021Q1

REPORT INFORMATION
  Report Type: Report from Study
  Country: None (occurrence: RO)
  Receive Date: 20210303
  Receipt Date: 20210330
  Transmission Date: 20210420
  Serious: Yes (Hospitalization, Other)
  Sender: FDA-Public Use
  Company Number: RO-ABBVIE-21K-135-3790772-00

PATIENT
  Age: 69 Year
  Sex: Female

DRUGS (17)
  1. CEREBROLYSIN [Concomitant]
     Active Substance: CEREBROLYSIN
     Indication: PRODUCT USED FOR UNKNOWN INDICATION
     Route: 042
     Dates: start: 20210225, end: 20210306
  2. IMMUNOGLOBULINS [Concomitant]
     Indication: POLYNEUROPATHY
     Route: 042
     Dates: start: 20210225, end: 2021
  3. IG VENA [Concomitant]
     Active Substance: HUMAN IMMUNOGLOBULIN G
     Indication: PRODUCT USED FOR UNKNOWN INDICATION
     Dosage: 5G/100ML X 100ML
     Route: 042
     Dates: start: 20210224, end: 20210228
  4. PLASMA, FRESH FROZEN [Concomitant]
     Active Substance: HUMAN PLASMA
     Indication: PRODUCT USED FOR UNKNOWN INDICATION
     Dates: start: 20210310, end: 20210312
  5. SARS?COV?2 VACCINE [Concomitant]
     Indication: COVID-19 PROPHYLAXIS
     Dates: start: 202102, end: 202102
  6. CEFORT [Concomitant]
     Active Substance: CEFTRIAXONE SODIUM
     Indication: PRODUCT USED FOR UNKNOWN INDICATION
     Route: 042
     Dates: start: 20210225, end: 20210305
  7. DUODOPA [Suspect]
     Active Substance: CARBIDOPA\LEVODOPA
     Dosage: DM=12.00 DC=5.50 ED=2.50 NRED=3; DMN=0.00 DCN=2.00 EDN=2.00?NREDN=0
     Route: 050
  8. VITAMIN D3 [Concomitant]
     Active Substance: CHOLECALCIFEROL
     Indication: PRODUCT USED FOR UNKNOWN INDICATION
     Route: 048
     Dates: start: 20210225, end: 20210305
  9. DUODOPA [Suspect]
     Active Substance: CARBIDOPA\LEVODOPA
     Indication: PARKINSON^S DISEASE
     Dosage: DM=12.00 DC=5.90 ED=3.00 NED=3; DMN=0.00 DCN=5.00 EDN=5.00 NEDN=0
     Route: 050
     Dates: start: 20200804, end: 2020
  10. IOMERON [Concomitant]
     Active Substance: IOMEPROL
     Indication: PRODUCT USED FOR UNKNOWN INDICATION
     Route: 042
     Dates: start: 20210301, end: 20210310
  11. CLEXANE [Concomitant]
     Active Substance: ENOXAPARIN SODIUM
     Indication: PRODUCT USED FOR UNKNOWN INDICATION
     Route: 058
     Dates: start: 20210310, end: 20210314
  12. ZINC. [Concomitant]
     Active Substance: ZINC
     Indication: PRODUCT USED FOR UNKNOWN INDICATION
     Route: 048
     Dates: start: 20210225, end: 20210305
  13. FAMOTIDINE. [Concomitant]
     Active Substance: FAMOTIDINE
     Indication: PRODUCT USED FOR UNKNOWN INDICATION
     Route: 048
     Dates: start: 20210224, end: 20210314
  14. DUODOPA [Suspect]
     Active Substance: CARBIDOPA\LEVODOPA
     Dosage: DM=13, DC= 6.8, ED= 3.5, NRED=3; DMN=0.00 DCN=3.00 EDN=3.00?NREDN=0
     Route: 050
     Dates: start: 20200804
  15. DEXAMETHASONE. [Concomitant]
     Active Substance: DEXAMETHASONE
     Indication: PRODUCT USED FOR UNKNOWN INDICATION
     Route: 042
     Dates: start: 20210224, end: 20210306
  16. FRAXIPARINE [Concomitant]
     Active Substance: NADROPARIN CALCIUM
     Indication: PRODUCT USED FOR UNKNOWN INDICATION
     Route: 058
     Dates: start: 20210224, end: 20210310
  17. VITAMIN C [Concomitant]
     Active Substance: ASCORBIC ACID
     Indication: PRODUCT USED FOR UNKNOWN INDICATION
     Route: 042
     Dates: start: 20210225, end: 20210305

REACTIONS (20)
  - Guillain-Barre syndrome [Recovering/Resolving]
  - Jaundice [Recovering/Resolving]
  - General physical condition abnormal [Recovering/Resolving]
  - Vitamin D deficiency [Recovering/Resolving]
  - COVID-19 [Recovered/Resolved]
  - Pyrexia [Recovered/Resolved]
  - Lymphadenopathy mediastinal [Unknown]
  - Cognitive disorder [Unknown]
  - Interstitial lung disease [Unknown]
  - Oedema peripheral [Recovering/Resolving]
  - Dysuria [Recovered/Resolved]
  - Pain in extremity [Recovering/Resolving]
  - Drug ineffective [Not Recovered/Not Resolved]
  - Cerebral atrophy [Unknown]
  - Quadriparesis [Recovering/Resolving]
  - Paralysis [Recovering/Resolving]
  - Chest wall tumour [Recovering/Resolving]
  - Pleurisy [Unknown]
  - Chest wall tumour [Recovering/Resolving]
  - Respiratory failure [Recovering/Resolving]

NARRATIVE: CASE EVENT DATE: 202102
